FAERS Safety Report 9107764 (Version 1)
Quarter: 2013Q1

REPORT INFORMATION
  Report Type: Spontaneous
  Country: US (occurrence: US)
  Receive Date: 20130221
  Receipt Date: 20130221
  Transmission Date: 20140127
  Serious: No
  Sender: FDA-Public Use
  Company Number: US-PFIZER INC-2013062943

PATIENT
  Age: 86 Year
  Sex: Female

DRUGS (10)
  1. SUTENT [Suspect]
     Indication: RENAL CANCER
     Dosage: 12.5 MG, UNK
     Dates: start: 20130131
  2. AMLODIPINE BESY-BENAZEPRIL HCL [Concomitant]
  3. OMEPRAZOLE [Concomitant]
  4. CLOPIDOGREL BISULFATE [Concomitant]
  5. QUETIAPINE FUMARATE [Concomitant]
  6. FUROSEMIDE [Concomitant]
  7. TEMAZEPAM [Concomitant]
  8. GLIPIZIDE [Concomitant]
  9. ZOLOFT [Concomitant]
  10. MECLIZINE HYDROCHLORIDE [Concomitant]

REACTIONS (1)
  - Headache [Unknown]
